FAERS Safety Report 12127177 (Version 4)
Quarter: 2016Q2

REPORT INFORMATION
  Report Type: Spontaneous
  Country: JP (occurrence: JP)
  Receive Date: 20160229
  Receipt Date: 20160418
  Transmission Date: 20160815
  Serious: Yes (Life-Threatening, Hospitalization, Disabling)
  Sender: FDA-Public Use
  Company Number: JP-OTSUKA-2016_005059

PATIENT
  Age: 79 Year
  Sex: Female

DRUGS (3)
  1. PLETAAL OD TABLETS 50MG [Suspect]
     Active Substance: CILOSTAZOL
     Indication: CEREBRAL INFARCTION
     Dosage: 50 MG, DAILY DOSE
     Route: 048
     Dates: start: 20120815, end: 20160202
  2. MUCOSTA TABLETS 100MG [Concomitant]
     Indication: PRODUCT USED FOR UNKNOWN INDICATION
     Dosage: 100 MG, DAILY DOSE
     Route: 048
     Dates: start: 20111130, end: 20160202
  3. BAYASPIRIN [Suspect]
     Active Substance: ASPIRIN
     Indication: PRODUCT USED FOR UNKNOWN INDICATION
     Dosage: 100 MG, DAILY DOSE
     Route: 048
     Dates: start: 20111130, end: 20160202

REACTIONS (3)
  - Hydrocephalus [Not Recovered/Not Resolved]
  - Cerebral haemorrhage [Recovering/Resolving]
  - Cerebellar haemorrhage [Not Recovered/Not Resolved]

NARRATIVE: CASE EVENT DATE: 20160202
